FAERS Safety Report 14140946 (Version 3)
Quarter: 2017Q4

REPORT INFORMATION
  Report Type: Spontaneous
  Country: JP (occurrence: JP)
  Receive Date: 20171030
  Receipt Date: 20171114
  Transmission Date: 20180321
  Serious: Yes (Hospitalization, Other)
  Sender: FDA-Public Use
  Company Number: JP-SHIRE-JP201727211AA

PATIENT
  Age: 42 Year
  Sex: Female
  Weight: 61 kg

DRUGS (6)
  1. AGRYLIN [Suspect]
     Active Substance: ANAGRELIDE HYDROCHLORIDE
     Indication: ESSENTIAL THROMBOCYTHAEMIA
     Dosage: 0.5 MG/DAY
     Route: 048
     Dates: start: 20170315, end: 20170328
  2. AGRYLIN [Suspect]
     Active Substance: ANAGRELIDE HYDROCHLORIDE
     Dosage: 2 MG/DAY
     Route: 048
     Dates: start: 20170831, end: 20171017
  3. BAYASPIRIN [Concomitant]
     Active Substance: ASPIRIN
     Indication: THROMBOSIS PROPHYLAXIS
     Dosage: 100 MG, 1X/DAY:QD EVERY MORNING
     Route: 048
     Dates: start: 20150909, end: 20170314
  4. AGRYLIN [Suspect]
     Active Substance: ANAGRELIDE HYDROCHLORIDE
     Dosage: 1 MG/DAY
     Route: 048
     Dates: start: 20170329, end: 20170614
  5. BAYASPIRIN [Concomitant]
     Active Substance: ASPIRIN
     Dosage: 100 MG, 1X/DAY:QD EVERY MORNING
     Route: 048
     Dates: start: 20170615
  6. AGRYLIN [Suspect]
     Active Substance: ANAGRELIDE HYDROCHLORIDE
     Dosage: 1.5 MG/DAY
     Route: 048
     Dates: start: 20170615, end: 20170830

REACTIONS (4)
  - Oedema peripheral [Unknown]
  - Weight increased [Not Recovered/Not Resolved]
  - VIth nerve paralysis [Not Recovered/Not Resolved]
  - Diplopia [Not Recovered/Not Resolved]

NARRATIVE: CASE EVENT DATE: 20171004
